FAERS Safety Report 5662835-7 (Version None)
Quarter: 2008Q1

REPORT INFORMATION
  Report Type: 
  Country: None (occurrence: None)
  Receive Date: 20080307
  Receipt Date: 20080225
  Transmission Date: 20080703
  Serious: Yes (Hospitalization)
  Sender: FDA-Public Use
  Company Number: 2008S1002149

PATIENT
  Age: 33 Year
  Sex: Male
  Weight: 78.4723 kg

DRUGS (15)
  1. CLOZAPINE [Suspect]
     Indication: SCHIZOPHRENIA
     Dosage: 200 MG; TWICE A DAY; ORAL
     Route: 048
     Dates: start: 20060101
  2. DECADRON [Suspect]
     Indication: MULTIPLE MYELOMA
     Dosage: 10 MG
     Dates: start: 20080121
  3. BACTRIM [Suspect]
     Indication: MULTIPLE MYELOMA
     Dosage: 3 TIMES PER WEEK; ORAL
     Route: 048
     Dates: start: 20080114
  4. VELCADE [Suspect]
     Indication: MULTIPLE MYELOMA
     Dosage: 1.3 MG/M**2
     Dates: start: 20080121
  5. REVLIMID [Suspect]
     Indication: MULTIPLE MYELOMA
     Dosage: 15 MG; DAILY
     Dates: start: 20080131
  6. VALTREX [Suspect]
     Indication: MULTIPLE MYELOMA
     Dosage: 500 MG; DAILY; ORAL
     Route: 048
     Dates: start: 20080114
  7. ASPIRIN [Suspect]
     Indication: MULTIPLE MYELOMA
     Dosage: 81 MG; DAILY
     Dates: start: 20080114
  8. ZOMETA [Suspect]
     Indication: MULTIPLE MYELOMA
     Dosage: 4 MG; MONTHLY; INTRAVENOUS
     Route: 042
     Dates: start: 20080121
  9. DEPAKOTE [Concomitant]
  10. LIPITOR [Concomitant]
  11. METOPROLOL TARTRATE [Concomitant]
  12. PROTONIX [Concomitant]
  13. FENOFIBRATE [Concomitant]
  14. PROVAIR [Concomitant]
  15. WARFARIN SODIUM [Concomitant]

REACTIONS (4)
  - HUMERUS FRACTURE [None]
  - MULTIPLE MYELOMA [None]
  - PLASMACYTOMA [None]
  - PYREXIA [None]
